FAERS Safety Report 8972127 (Version 1)
Quarter: 2012Q4

REPORT INFORMATION
  Report Type: 
  Country: US (occurrence: US)
  Receive Date: 20121101
  Receipt Date: 20121101
  Transmission Date: 20130627
  Serious: Yes (Death, Life-Threatening, Other)
  Sender: FDA-Public Use
  Company Number: US-RB-045309-12

PATIENT
  Age: 12 Month
  Sex: Female
  Weight: 13 kg

DRUGS (2)
  1. SUBOXONE TABLET [Suspect]
     Indication: ACCIDENTAL DRUG INTAKE BY CHILD
     Dosage: Unknown dosing details
     Route: 065
     Dates: start: 201205, end: 201205
  2. ALLERGY MEDICATION [Suspect]
     Indication: MULTIPLE ALLERGIES
     Dosage: Unknown dosing details
     Route: 065

REACTIONS (4)
  - Accidental exposure to product by child [Fatal]
  - Somnolence [Unknown]
  - Unresponsive to stimuli [Unknown]
  - Toxicity to various agents [Fatal]
